FAERS Safety Report 20919944 (Version 1)
Quarter: 2022Q2

REPORT INFORMATION
  Report Type: Report from Study
  Country: IE (occurrence: IE)
  Receive Date: 20220606
  Receipt Date: 20220606
  Transmission Date: 20220721
  Serious: Yes (Other)
  Sender: FDA-Public Use
  Company Number: IE-NOVARTISPH-NVSC2022IE108385

PATIENT

DRUGS (2)
  1. VOTRIENT [Suspect]
     Active Substance: PAZOPANIB HYDROCHLORIDE
     Indication: Metastatic renal cell carcinoma
     Dosage: 600 MG
     Route: 048
     Dates: start: 20220503, end: 20220526
  2. VOTRIENT [Suspect]
     Active Substance: PAZOPANIB HYDROCHLORIDE
     Dosage: 400 MG
     Route: 065

REACTIONS (9)
  - Pulmonary thrombosis [Unknown]
  - Malaise [Unknown]
  - Eating disorder [Unknown]
  - Blood pressure diastolic increased [Unknown]
  - Joint swelling [Unknown]
  - Blood pressure decreased [Unknown]
  - Fatigue [Unknown]
  - Asthenia [Unknown]
  - Arthralgia [Unknown]
